FAERS Safety Report 20559243 (Version 1)
Quarter: 2022Q1

REPORT INFORMATION
  Report Type: Spontaneous
  Country: US (occurrence: US)
  Receive Date: 20220307
  Receipt Date: 20220307
  Transmission Date: 20220424
  Serious: No
  Sender: FDA-Public Use
  Company Number: US-TEVA-2022-US-2009937

PATIENT
  Age: 66 Year
  Sex: Female

DRUGS (1)
  1. AUSTEDO [Suspect]
     Active Substance: DEUTETRABENAZINE
     Indication: Tardive dyskinesia
     Dosage: 30 MILLIGRAM DAILY; STRENGTH: 6 + 9 MG, TWICE DAILY
     Route: 065
     Dates: start: 20220121, end: 20220131

REACTIONS (2)
  - Somnolence [Unknown]
  - Muscular weakness [Unknown]
